FAERS Safety Report 9651135 (Version 1)
Quarter: 2013Q4

REPORT INFORMATION
  Report Type: Spontaneous
  Country: US (occurrence: US)
  Receive Date: 20131029
  Receipt Date: 20131029
  Transmission Date: 20140711
  Serious: No
  Sender: FDA-Public Use
  Company Number: US-PFIZER INC-2013306839

PATIENT
  Age: 60 Year
  Sex: Male
  Weight: 71.2 kg

DRUGS (5)
  1. NEURONTIN [Suspect]
     Indication: LIMB DISCOMFORT
     Dosage: 200 MG, 1X/DAY
     Route: 048
  2. ATENOLOL [Concomitant]
     Indication: HYPERTENSION
     Dosage: UNK
  3. HYDROCHLOROTHIAZIDE [Concomitant]
     Indication: HYPERTENSION
     Dosage: UNK
  4. ALPRAZOLAM [Concomitant]
     Dosage: UNK
  5. ACYCLOVIR [Concomitant]
     Dosage: UNK

REACTIONS (4)
  - Off label use [Unknown]
  - Neuropathy peripheral [Unknown]
  - Hearing impaired [Unknown]
  - Pain [Unknown]
